FAERS Safety Report 20014171 (Version 1)
Quarter: 2021Q4

REPORT INFORMATION
  Report Type: Spontaneous
  Country: AU (occurrence: AU)
  Receive Date: 20211029
  Receipt Date: 20211029
  Transmission Date: 20220303
  Serious: Yes (Other)
  Sender: FDA-Public Use
  Company Number: AU-GE HEALTHCARE-2021CSU005320

PATIENT

DRUGS (5)
  1. OMNIPAQUE [Suspect]
     Active Substance: IOHEXOL
     Indication: Computerised tomogram thorax
     Dosage: 68 ML, SINGLE
     Route: 042
     Dates: start: 20211020, end: 20211020
  2. OMNIPAQUE [Suspect]
     Active Substance: IOHEXOL
     Indication: Computerised tomogram abdomen
  3. OMNIPAQUE [Suspect]
     Active Substance: IOHEXOL
     Indication: Abdominal pain
  4. OMNIPAQUE [Suspect]
     Active Substance: IOHEXOL
     Indication: Lipase increased
  5. OMNIPAQUE [Suspect]
     Active Substance: IOHEXOL
     Indication: Familial risk factor

REACTIONS (4)
  - Sneezing [Recovered/Resolved]
  - Asthma [Recovered/Resolved]
  - Erythema [Recovered/Resolved]
  - Nausea [Recovered/Resolved]

NARRATIVE: CASE EVENT DATE: 20211020
